FAERS Safety Report 25712962 (Version 2)
Quarter: 2025Q4

REPORT INFORMATION
  Report Type: Spontaneous
  Country: JP (occurrence: JP)
  Receive Date: 20250821
  Receipt Date: 20251006
  Transmission Date: 20260117
  Serious: Yes (Other)
  Sender: GLAXOSMITHKLINE
  Company Number: JP-GSKJP-JP2025JPN106928AA

PATIENT
  Age: 75 Year
  Sex: Male

DRUGS (4)
  1. DAPRODUSTAT [Suspect]
     Active Substance: DAPRODUSTAT
     Dosage: 2 MG, QD
  2. DAPRODUSTAT [Suspect]
     Active Substance: DAPRODUSTAT
     Dosage: 4 MG, QD
  3. DAPRODUSTAT [Suspect]
     Active Substance: DAPRODUSTAT
     Dosage: 6 MG, QD
  4. DAPRODUSTAT [Suspect]
     Active Substance: DAPRODUSTAT
     Dosage: 8 MG, QD

REACTIONS (7)
  - End stage renal disease [Unknown]
  - Type 2 diabetes mellitus [Unknown]
  - Angina pectoris [Unknown]
  - Age-related macular degeneration [Recovering/Resolving]
  - Diabetic neuropathy [Unknown]
  - Emphysema [Unknown]
  - Hypertension [Unknown]
